FAERS Safety Report 23526186 (Version 2)
Quarter: 2024Q1

REPORT INFORMATION
  Report Type: Spontaneous
  Country: US (occurrence: None)
  Receive Date: 20240215
  Receipt Date: 20240220
  Transmission Date: 20240410
  Serious: Yes (Other)
  Sender: FDA-Public Use
  Company Number: US-ROCHE-3507938

PATIENT
  Sex: Male

DRUGS (2)
  1. VABYSMO [Suspect]
     Active Substance: FARICIMAB\FARICIMAB-SVOA
     Indication: Neovascular age-related macular degeneration
     Dosage: 6 MG/0/05 ML
     Route: 050
     Dates: start: 20220823, end: 20231002
  2. EYLEA [Concomitant]
     Active Substance: AFLIBERCEPT

REACTIONS (7)
  - Blindness [Recovered/Resolved]
  - Intra-ocular injection complication [Unknown]
  - Retinal haemorrhage [Recovered/Resolved]
  - Vitreal cells [Recovered/Resolved]
  - Anterior chamber cell [Unknown]
  - Eye disorder [Unknown]
  - Vitritis [Unknown]

NARRATIVE: CASE EVENT DATE: 20240205
